FAERS Safety Report 8547302-5 (Version None)
Quarter: 2012Q3

REPORT INFORMATION
  Report Type: 
  Country: None (occurrence: None)
  Receive Date: 20120727
  Receipt Date: 20120315
  Transmission Date: 20120928
  Serious: No
  Sender: FDA-Public Use
  Company Number: US-ASTRAZENECA-2012SE18208

PATIENT
  Age: 70 Year
  Sex: Female

DRUGS (3)
  1. VIMOVO [Suspect]
     Route: 048
  2. SYMBICORT [Suspect]
     Route: 055
  3. SEROQUEL [Suspect]
     Route: 048

REACTIONS (1)
  - PAIN [None]
